FAERS Safety Report 9235750 (Version 1)
Quarter: 2013Q2

REPORT INFORMATION
  Report Type: Spontaneous
  Country: US (occurrence: US)
  Receive Date: 20130417
  Receipt Date: 20130417
  Transmission Date: 20140414
  Serious: Yes (Hospitalization, Other)
  Sender: FDA-Public Use
  Company Number: US-BAYER-2013-047244

PATIENT
  Age: 48 Year
  Sex: Female
  Weight: 99.77 kg

DRUGS (4)
  1. YASMIN [Suspect]
     Dosage: UNK
     Dates: start: 1991, end: 2007
  2. CLARINEX [DESLORATADINE] [Concomitant]
     Dosage: 5 MG, UNK
  3. ECOTRIN [Concomitant]
     Dosage: 81 MG, DAILY
  4. ADVIL [Concomitant]

REACTIONS (10)
  - Pulmonary embolism [None]
  - Gallbladder injury [None]
  - Pulmonary infarction [None]
  - Atelectasis [None]
  - Lung disorder [None]
  - Painful respiration [None]
  - Back pain [None]
  - Back pain [None]
  - Emotional distress [None]
  - Cholecystitis chronic [None]
